FAERS Safety Report 9775766 (Version 1)
Quarter: 2013Q4

REPORT INFORMATION
  Report Type: Spontaneous
  Country: US (occurrence: US)
  Receive Date: 20131220
  Receipt Date: 20131220
  Transmission Date: 20140711
  Serious: No
  Sender: FDA-Public Use
  Company Number: US-PFIZER INC-2013357656

PATIENT
  Age: 81 Year
  Sex: Female
  Weight: 58.96 kg

DRUGS (2)
  1. CELEBREX [Suspect]
     Dosage: UNK
  2. METOPROLOL TARTRATE [Suspect]
     Dosage: UNK

REACTIONS (4)
  - Fall [Unknown]
  - Fatigue [Unknown]
  - Somnolence [Unknown]
  - Skin ulcer [Not Recovered/Not Resolved]
